FAERS Safety Report 15232446 (Version 1)
Quarter: 2018Q3

REPORT INFORMATION
  Report Type: Spontaneous
  Country: KR (occurrence: KR)
  Receive Date: 20180802
  Receipt Date: 20180802
  Transmission Date: 20181010
  Serious: Yes (Other)
  Sender: FDA-Public Use
  Company Number: KR-BAYER-2018-137025

PATIENT
  Age: 70 Year
  Sex: Male

DRUGS (4)
  1. NEXAVAR [Suspect]
     Active Substance: SORAFENIB
     Indication: THYROID CANCER
     Dosage: 600 MG,  DAILY
     Dates: start: 201601
  2. UREA. [Concomitant]
     Active Substance: UREA
     Indication: PALMAR-PLANTAR ERYTHRODYSAESTHESIA SYNDROME
  3. IBUPROFEN. [Concomitant]
     Active Substance: IBUPROFEN
  4. NEXAVAR [Suspect]
     Active Substance: SORAFENIB
     Indication: THYROID CANCER
     Dosage: 400 MG
     Dates: start: 201603

REACTIONS (13)
  - Thyroglobulin increased [None]
  - Off label use [None]
  - Pleural effusion [None]
  - Palmar-plantar erythrodysaesthesia syndrome [None]
  - Palmar-plantar erythrodysaesthesia syndrome [None]
  - Atelectasis [None]
  - Palmar-plantar erythrodysaesthesia syndrome [None]
  - Thyroglobulin increased [None]
  - Thyroid cancer [None]
  - Thyroglobulin increased [None]
  - Alopecia [None]
  - Thyroglobulin increased [None]
  - Diarrhoea [None]

NARRATIVE: CASE EVENT DATE: 201603
